FAERS Safety Report 9095361 (Version 1)
Quarter: 2013Q1

REPORT INFORMATION
  Report Type: Spontaneous
  Country: US (occurrence: None)
  Receive Date: 20130123
  Receipt Date: 20130123
  Transmission Date: 20140127
  Serious: Yes (Disabling, Other)
  Sender: FDA-Public Use
  Company Number: 2012P1066648

PATIENT
  Age: 34 Year
  Sex: Male

DRUGS (2)
  1. INFUMORPH [Suspect]
     Indication: PAIN
     Dates: start: 20070612, end: 201208
  2. INFUMORPH [Suspect]
     Indication: LUMBAR RADICULOPATHY
     Dates: start: 20070612, end: 201208

REACTIONS (21)
  - Influenza like illness [None]
  - Drug withdrawal syndrome [None]
  - Hypersensitivity [None]
  - Parosmia [None]
  - Tremor [None]
  - Scratch [None]
  - Skin haemorrhage [None]
  - Trichotillomania [None]
  - Nausea [None]
  - Muscle contracture [None]
  - Vomiting [None]
  - Diarrhoea [None]
  - Pain [None]
  - Depression [None]
  - Suicidal ideation [None]
  - Amnesia [None]
  - Mobility decreased [None]
  - Eye disorder [None]
  - Activities of daily living impaired [None]
  - Weight decreased [None]
  - Medical device complication [None]
